FAERS Safety Report 10884905 (Version 1)
Quarter: 2015Q1

REPORT INFORMATION
  Report Type: Spontaneous
  Country: US (occurrence: US)
  Receive Date: 20150304
  Receipt Date: 20150304
  Transmission Date: 20150721
  Serious: No
  Sender: FDA-Public Use
  Company Number: US-TEVA-490870USA

PATIENT
  Sex: Male

DRUGS (1)
  1. AMOXICILLIN. [Suspect]
     Active Substance: AMOXICILLIN
     Indication: TOOTH ABSCESS
     Dosage: 1750 MILLIGRAM DAILY; TOOK 2 OF 20
     Route: 048
     Dates: start: 20140601, end: 20140602

REACTIONS (2)
  - Hypersensitivity [Recovered/Resolved]
  - Vomiting [Recovered/Resolved]
